FAERS Safety Report 18413775 (Version 1)
Quarter: 2020Q4

REPORT INFORMATION
  Report Type: Spontaneous
  Country: US (occurrence: US)
  Receive Date: 20201022
  Receipt Date: 20201022
  Transmission Date: 20210114
  Serious: Yes (Death, Hospitalization, Other)
  Sender: FDA-Public Use
  Company Number: US-SUN PHARMACEUTICAL INDUSTRIES LTD-2019R1-221182

PATIENT
  Age: 54 Year
  Sex: Male

DRUGS (1)
  1. ACETAMINOPHEN. [Suspect]
     Active Substance: ACETAMINOPHEN
     Indication: PRODUCT USED FOR UNKNOWN INDICATION
     Dosage: UNK
     Route: 048

REACTIONS (10)
  - Metabolic acidosis [Unknown]
  - Delirium [Unknown]
  - Analgesic drug level increased [Unknown]
  - Acidosis [Unknown]
  - AST/ALT ratio abnormal [Unknown]
  - Pulseless electrical activity [Fatal]
  - Methaemoglobinaemia [Unknown]
  - Hypotension [Unknown]
  - Coagulopathy [Unknown]
  - Mental status changes [Unknown]
